FAERS Safety Report 4549425-4 (Version None)
Quarter: 2005Q1

REPORT INFORMATION
  Report Type: 
  Country: None (occurrence: None)
  Receive Date: 20050111
  Receipt Date: 20050104
  Transmission Date: 20050727
  Serious: Yes (Other)
  Sender: FDA-Public Use
  Company Number: 200510085US

PATIENT
  Sex: Male

DRUGS (5)
  1. RIFAMPIN [Suspect]
     Indication: TUBERCULOSIS
     Dates: start: 19750201
  2. PYRAZINAMIDE [Suspect]
     Indication: TUBERCULOSIS
     Dates: start: 19750201
  3. ETHAMBUTOL [Concomitant]
     Dates: start: 19750201
  4. P.A.S. [Concomitant]
     Dates: end: 19670101
  5. STREPTOMYCIN [Concomitant]
     Dosage: DOSE: 1 G
     Dates: start: 19670526, end: 19670527

REACTIONS (1)
  - HEPATIC CIRRHOSIS [None]
